FAERS Safety Report 19194943 (Version 1)
Quarter: 2021Q2

REPORT INFORMATION
  Report Type: Spontaneous
  Country: US (occurrence: US)
  Receive Date: 20210429
  Receipt Date: 20210429
  Transmission Date: 20210717
  Serious: No
  Sender: FDA-Public Use
  Company Number: None

PATIENT
  Age: 24 Year
  Sex: Male
  Weight: 74.25 kg

DRUGS (2)
  1. ALK?BELLA PERCUTANEOUS ALLERGY TESTING [Concomitant]
     Dates: start: 20210422, end: 20210422
  2. STERILE ALCOHOL PREP PADS [Suspect]
     Active Substance: ISOPROPYL ALCOHOL
     Dates: start: 20210422, end: 20210422

REACTIONS (2)
  - Application site pain [None]
  - Application site inflammation [None]

NARRATIVE: CASE EVENT DATE: 20210422
